FAERS Safety Report 10591802 (Version 1)
Quarter: 2014Q4

REPORT INFORMATION
  Report Type: Spontaneous
  Country: DE (occurrence: DE)
  Receive Date: 20141118
  Receipt Date: 20141118
  Transmission Date: 20150529
  Serious: Yes (Death, Hospitalization)
  Sender: FDA-Public Use
  Company Number: DE-MYLANLABS-2014M1010975

PATIENT

DRUGS (1)
  1. METHADONE [Suspect]
     Active Substance: METHADONE HYDROCHLORIDE
     Route: 065

REACTIONS (3)
  - Brain injury [Fatal]
  - Coma [Fatal]
  - Pulmonary oedema [None]
